FAERS Safety Report 17913626 (Version 1)
Quarter: 2020Q2

REPORT INFORMATION
  Report Type: Spontaneous
  Country: DE (occurrence: DE)
  Receive Date: 20200618
  Receipt Date: 20200618
  Transmission Date: 20200714
  Serious: Yes (Hospitalization)
  Sender: FDA-Public Use
  Company Number: DE-MYLANLABS-2020M1057288

PATIENT
  Age: 31 Year
  Sex: Male

DRUGS (2)
  1. LEVETIRACETAM. [Suspect]
     Active Substance: LEVETIRACETAM
     Indication: PRODUCT USED FOR UNKNOWN INDICATION
     Dosage: 750 MILLIGRAM, BID (750 MG, 1-0-1-0)
     Route: 048
  2. RAMIPRIL. [Concomitant]
     Active Substance: RAMIPRIL
     Dosage: 5 MILLIGRAM, BID (5 MG, 1-0-1-0)
     Route: 048

REACTIONS (5)
  - Muscular weakness [Unknown]
  - Sedation [Unknown]
  - Paraesthesia [Unknown]
  - Hypoaesthesia [Unknown]
  - Product prescribing error [Unknown]
